FAERS Safety Report 6235858-7 (Version None)
Quarter: 2009Q2

REPORT INFORMATION
  Report Type: 
  Country: None (occurrence: None)
  Receive Date: 20090619
  Receipt Date: 20090610
  Transmission Date: 20091009
  Serious: Yes (Other)
  Sender: FDA-Public Use
  Company Number: US-JNJFOC-20090604191

PATIENT
  Sex: Female
  Weight: 68.95 kg

DRUGS (10)
  1. REMICADE [Suspect]
     Route: 042
  2. REMICADE [Suspect]
     Indication: RHEUMATOID ARTHRITIS
     Route: 042
  3. LISINOPRIL [Concomitant]
  4. FAMODINE [Concomitant]
  5. AMLODIPINE [Concomitant]
  6. METFORMIN HCL [Concomitant]
  7. PREDNISONE [Concomitant]
  8. SPIRIVA [Concomitant]
  9. ADVAIR HFA [Concomitant]
  10. NASONEX [Concomitant]

REACTIONS (3)
  - CYANOSIS [None]
  - DYSPNOEA [None]
  - INFUSION RELATED REACTION [None]
